FAERS Safety Report 20118054 (Version 1)
Quarter: 2021Q4

REPORT INFORMATION
  Report Type: Spontaneous
  Country: CN (occurrence: CN)
  Receive Date: 20211126
  Receipt Date: 20211126
  Transmission Date: 20220303
  Serious: Yes (Hospitalization, Other)
  Sender: FDA-Public Use
  Company Number: CN-009507513-2111CHN008583

PATIENT
  Age: 60 Year
  Sex: Female

DRUGS (2)
  1. INVANZ [Suspect]
     Active Substance: ERTAPENEM SODIUM
     Indication: Anti-infective therapy
     Dosage: DOSE: 0.5 G, FREQUENCY: ONCE DAILY
     Route: 041
     Dates: start: 20210420, end: 20210508
  2. TORSEMIDE [Concomitant]
     Active Substance: TORSEMIDE
     Indication: Diuretic therapy
     Dosage: DOSE: 1 PIECE, FREQUENCY: TWICE A DAY
     Route: 042
     Dates: start: 20210424, end: 20210508

REACTIONS (2)
  - Drug-induced liver injury [Recovering/Resolving]
  - Incorrect dose administered [Unknown]

NARRATIVE: CASE EVENT DATE: 20210420
